FAERS Safety Report 19498430 (Version 1)
Quarter: 2021Q3

REPORT INFORMATION
  Report Type: Spontaneous
  Country: CN (occurrence: CN)
  Receive Date: 20210706
  Receipt Date: 20210706
  Transmission Date: 20211014
  Serious: Yes (Hospitalization)
  Sender: FDA-Public Use
  Company Number: CN-BAXTER-2021BAX018552

PATIENT
  Age: 16 Year
  Sex: Female
  Weight: 49 kg

DRUGS (4)
  1. HOLOXAN [Suspect]
     Active Substance: IFOSFAMIDE
     Indication: OSTEOSARCOMA
     Dosage: IFOSFAMIDE 3.6 G + NORMAL SALINE 500 ML
     Route: 041
     Dates: start: 20210505, end: 20210507
  2. HOLOXAN [Suspect]
     Active Substance: IFOSFAMIDE
     Dosage: IFOSFAMIDE 3.6 G + NORMAL SALINE 500 ML
     Route: 041
     Dates: start: 20210510, end: 20210511
  3. 0.9% SODIUM CHLORIDE INJECTION [Suspect]
     Active Substance: SODIUM CHLORIDE
     Indication: MEDICATION DILUTION
     Dosage: NORMAL SALINE 500 ML + IFOSFAMIDE 3.6 G
     Route: 041
     Dates: start: 20210505, end: 20210507
  4. 0.9% SODIUM CHLORIDE INJECTION [Suspect]
     Active Substance: SODIUM CHLORIDE
     Dosage: NORMAL SALINE 500 ML + IFOSFAMIDE 3.6 G
     Route: 041
     Dates: start: 20210510, end: 20210511

REACTIONS (1)
  - Myelosuppression [Recovering/Resolving]

NARRATIVE: CASE EVENT DATE: 20210512
